FAERS Safety Report 6960752-3 (Version None)
Quarter: 2010Q3

REPORT INFORMATION
  Report Type: 
  Country: None (occurrence: None)
  Receive Date: 20100901
  Receipt Date: 20100820
  Transmission Date: 20110219
  Serious: Yes (Hospitalization)
  Sender: FDA-Public Use
  Company Number: NL-MEDIMMUNE-MEDI-0010644

PATIENT
  Sex: Male
  Weight: 9.73 kg

DRUGS (2)
  1. SYNAGIS [Suspect]
     Route: 030
     Dates: start: 20091009, end: 20091230
  2. SYNAGIS [Suspect]
     Route: 030
     Dates: start: 20100205, end: 20100225

REACTIONS (2)
  - HAEMOGLOBIN DECREASED [None]
  - PALLOR [None]
